FAERS Safety Report 9836772 (Version 2)
Quarter: 2014Q1

REPORT INFORMATION
  Report Type: Spontaneous
  Country: US (occurrence: US)
  Receive Date: 20140123
  Receipt Date: 20140204
  Transmission Date: 20141002
  Serious: No
  Sender: FDA-Public Use
  Company Number: US-PFIZER INC-2014014474

PATIENT
  Age: 83 Year
  Sex: Female

DRUGS (16)
  1. TALWIN [Suspect]
     Dosage: UNK
  2. VALIUM [Suspect]
     Dosage: UNK
  3. VIOXX [Suspect]
     Dosage: UNK
  4. ZANTAC [Suspect]
     Dosage: UNK
  5. CELEBREX [Suspect]
     Dosage: UNK
  6. CORTISONE [Suspect]
     Dosage: UNK
  7. DIFLUCAN [Suspect]
     Dosage: UNK
  8. HYDROCHLOROTHIAZIDE [Suspect]
     Dosage: UNK
  9. METRONIDAZOLE [Suspect]
     Dosage: UNK
  10. PROTONIX [Suspect]
     Dosage: UNK
  11. ALTACE [Suspect]
     Dosage: UNK
  12. BEXTRA [Suspect]
     Dosage: UNK
  13. AZOPT [Suspect]
     Dosage: UNK
  14. CLARINEX [Suspect]
     Dosage: UNK
  15. PREVACID [Suspect]
     Dosage: UNK
  16. SINGULAIR [Suspect]
     Dosage: UNK

REACTIONS (1)
  - Drug hypersensitivity [Unknown]
